FAERS Safety Report 18661224 (Version 2)
Quarter: 2020Q4

REPORT INFORMATION
  Report Type: Spontaneous
  Country: US (occurrence: US)
  Receive Date: 20201224
  Receipt Date: 20201227
  Transmission Date: 20210114
  Serious: No
  Sender: FDA-Public Use
  Company Number: US-JNJFOC-20201224233

PATIENT
  Age: 23 Year
  Sex: Female
  Weight: 63.56 kg

DRUGS (2)
  1. NIACIN. [Concomitant]
     Active Substance: NIACIN
  2. TREMFYA [Suspect]
     Active Substance: GUSELKUMAB
     Indication: PSORIASIS
     Route: 065

REACTIONS (6)
  - Injection site swelling [Not Recovered/Not Resolved]
  - Accidental exposure to product [Not Recovered/Not Resolved]
  - Injection site haemorrhage [Unknown]
  - Device malfunction [Not Recovered/Not Resolved]
  - Injection site pain [Not Recovered/Not Resolved]
  - Product dose omission issue [Unknown]

NARRATIVE: CASE EVENT DATE: 20201210
